FAERS Safety Report 6612837-9 (Version None)
Quarter: 2010Q1

REPORT INFORMATION
  Report Type: 
  Country: None (occurrence: None)
  Receive Date: 20100303
  Receipt Date: 20100104
  Transmission Date: 20100710
  Serious: Yes (Death)
  Sender: FDA-Public Use
  Company Number: US-BAYER-201017113GPV

PATIENT
  Age: 28 Year
  Sex: Male

DRUGS (2)
  1. CHLORPHENIRAMINE MALEATE [Suspect]
  2. ACETAMINOPHEN/ CAFFEINE/ SALICYLATE [Suspect]

REACTIONS (1)
  - DRUG TOXICITY [None]
